FAERS Safety Report 6137044-8 (Version None)
Quarter: 2009Q1

REPORT INFORMATION
  Report Type: 
  Country: None (occurrence: None)
  Receive Date: 20090330
  Receipt Date: 20090324
  Transmission Date: 20090719
  Serious: No
  Sender: FDA-Public Use
  Company Number: MY-EISAI MEDICAL RESEARCH-E2020-04174-SPO-MY

PATIENT
  Age: 75 Year
  Sex: Male

DRUGS (1)
  1. ARICEPT [Suspect]
     Indication: VASCULAR DEMENTIA
     Route: 048

REACTIONS (1)
  - BIPOLAR I DISORDER [None]
